FAERS Safety Report 18058926 (Version 3)
Quarter: 2022Q1

REPORT INFORMATION
  Report Type: Spontaneous
  Country: JP (occurrence: None)
  Receive Date: 20200723
  Receipt Date: 20220309
  Transmission Date: 20220424
  Serious: Yes (Other)
  Sender: FDA-Public Use
  Company Number: 2020SE90862

PATIENT
  Age: 54 Year
  Sex: Female

DRUGS (2)
  1. LYNPARZA [Suspect]
     Active Substance: OLAPARIB
     Indication: Ovarian cancer
     Route: 048
  2. LYNPARZA [Suspect]
     Active Substance: OLAPARIB
     Indication: Ovarian cancer
     Route: 048

REACTIONS (7)
  - Malignant neoplasm progression [Unknown]
  - Neutrophil count decreased [Unknown]
  - Malaise [Unknown]
  - Somnolence [Unknown]
  - Anaemia [Unknown]
  - Platelet count decreased [Unknown]
  - Nausea [Unknown]
